FAERS Safety Report 4419557-X (Version None)
Quarter: 2004Q3

REPORT INFORMATION
  Report Type: 
  Country: None (occurrence: None)
  Receive Date: 20040809
  Receipt Date: 20040216
  Transmission Date: 20050211
  Serious: No
  Sender: FDA-Public Use
  Company Number: US-GLAXOSMITHKLINE-A0498328A

PATIENT
  Age: 32 Year
  Sex: Female

DRUGS (3)
  1. PAXIL [Suspect]
     Dosage: 5MG PER DAY
     Route: 048
     Dates: start: 20040126
  2. ATIVAN [Concomitant]
  3. ORTHO EVRA [Concomitant]

REACTIONS (1)
  - ANORGASMIA [None]
